FAERS Safety Report 11116038 (Version 1)
Quarter: 2015Q2

REPORT INFORMATION
  Report Type: Spontaneous
  Country: US (occurrence: None)
  Receive Date: 20150514
  Receipt Date: 20150514
  Transmission Date: 20150821
  Serious: Yes (Hospitalization)
  Sender: FDA-Public Use
  Company Number: None

PATIENT
  Age: 75 Year
  Sex: Male
  Weight: 113.8 kg

DRUGS (2)
  1. LISINOPRIL. [Suspect]
     Active Substance: LISINOPRIL
     Dosage: 20 MG, EVERY DAY, PO?
     Route: 048
     Dates: start: 20150408, end: 20150413
  2. LISINOPRIL. [Suspect]
     Active Substance: LISINOPRIL
     Indication: DIABETES MELLITUS
     Dosage: 20 MG, EVERY DAY, PO?
     Route: 048
     Dates: start: 20150408, end: 20150413

REACTIONS (2)
  - Angioedema [None]
  - Dysphagia [None]

NARRATIVE: CASE EVENT DATE: 20150413
